FAERS Safety Report 9416974 (Version 10)
Quarter: 2014Q1

REPORT INFORMATION
  Report Type: Report from Study
  Country: ES (occurrence: ES)
  Receive Date: 20130724
  Receipt Date: 20140225
  Transmission Date: 20141002
  Serious: Yes (Hospitalization)
  Sender: FDA-Public Use
  Company Number: ES-ROCHE-1245867

PATIENT
  Age: 67 Year
  Sex: Male
  Weight: 55.5 kg

DRUGS (4)
  1. PRIMPERAN [Concomitant]
     Indication: NAUSEA
     Route: 048
     Dates: start: 20130430
  2. RIBAVIRIN [Suspect]
     Indication: HEPATITIS C
     Route: 048
     Dates: start: 20130401, end: 20130625
  3. BI 207127 [Suspect]
     Indication: HEPATITIS C
     Route: 048
     Dates: start: 20130401, end: 20130625
  4. BI 201335 [Suspect]
     Indication: HEPATITIS C
     Route: 048
     Dates: start: 20130401, end: 20130625

REACTIONS (2)
  - Agranulocytosis [Recovered/Resolved]
  - Febrile neutropenia [Recovered/Resolved]
